FAERS Safety Report 8089739-7 (Version None)
Quarter: 2012Q1

REPORT INFORMATION
  Report Type: 
  Country: None (occurrence: None)
  Receive Date: 20120128
  Receipt Date: 20110713
  Transmission Date: 20120608
  Serious: No
  Sender: FDA-Public Use
  Company Number: US-ABBOTT-11P-163-0838573-00

PATIENT
  Age: 47 Year
  Sex: Female

DRUGS (5)
  1. NEXIUM [Concomitant]
     Indication: DYSPEPSIA
  2. METHOTREXATE [Concomitant]
     Indication: RHEUMATOID ARTHRITIS
  3. HUMIRA [Suspect]
     Indication: RHEUMATOID ARTHRITIS
     Dates: start: 20110119
  4. FOLIC ACID [Concomitant]
     Indication: VITAMIN SUPPLEMENTATION
  5. CELEBREX [Concomitant]
     Indication: ARTHRALGIA

REACTIONS (6)
  - DYSPNOEA [None]
  - RHINORRHOEA [None]
  - SINUS CONGESTION [None]
  - PYREXIA [None]
  - COUGH [None]
  - UPPER RESPIRATORY TRACT CONGESTION [None]
